FAERS Safety Report 7308938-2 (Version None)
Quarter: 2011Q1

REPORT INFORMATION
  Report Type: 
  Country: None (occurrence: None)
  Receive Date: 20110223
  Receipt Date: 20110210
  Transmission Date: 20110831
  Serious: Yes (Other)
  Sender: FDA-Public Use
  Company Number: JP-PFIZER INC-2011035618

PATIENT
  Age: 61 Year
  Sex: Female

DRUGS (6)
  1. LIPITOR [Suspect]
     Dosage: 5 MG, 1X/DAY
     Route: 048
  2. ALFACALCIDOL [Suspect]
     Dosage: 0.5 MG, 1X/DAY
     Route: 048
  3. PROGRAF [Suspect]
     Indication: RHEUMATOID ARTHRITIS
     Dosage: 2 MG, 1X/DAY
     Route: 048
     Dates: end: 20110120
  4. METHOTREXATE SODIUM [Suspect]
     Dosage: 8 MG, 1X/DAY
     Route: 048
  5. FOLIAMIN [Suspect]
     Dosage: 5 MG, 1X/DAY
     Route: 048
  6. PREDNISOLONE [Suspect]
     Dosage: 1.5 MG, 1X/DAY
     Route: 048

REACTIONS (1)
  - RETINAL HAEMORRHAGE [None]
